FAERS Safety Report 4588486-3 (Version None)
Quarter: 2005Q1

REPORT INFORMATION
  Report Type: 
  Country: None (occurrence: None)
  Receive Date: 20050215
  Receipt Date: 20050215
  Transmission Date: 20050727
  Serious: Yes (Disabling)
  Sender: FDA-Public Use
  Company Number: None

PATIENT
  Sex: Male
  Weight: 86.1834 kg

DRUGS (5)
  1. ZYPREXA [Suspect]
     Indication: POST-TRAUMATIC STRESS DISORDER
     Dosage: 5 MG   QD PRN   ORAL
     Route: 048
     Dates: start: 20031110, end: 20041221
  2. NORTRIPTYLINE HCL [Concomitant]
  3. NEURONTIN [Concomitant]
  4. BUSPAR [Concomitant]
  5. IBUPROFEN [Concomitant]

REACTIONS (2)
  - DYSPRAXIA [None]
  - HYPOAESTHESIA [None]
